FAERS Safety Report 23933618 (Version 4)
Quarter: 2024Q3

REPORT INFORMATION
  Report Type: Spontaneous
  Country: US (occurrence: US)
  Receive Date: 20240603
  Receipt Date: 20240911
  Transmission Date: 20241017
  Serious: No
  Sender: NOVARTIS
  Company Number: US-002147023-NVSC2024US115843

PATIENT
  Sex: Male

DRUGS (1)
  1. COSENTYX [Suspect]
     Active Substance: SECUKINUMAB
     Indication: Product used for unknown indication
     Dosage: 150 MG X2, QMO
     Route: 065

REACTIONS (5)
  - Device occlusion [Unknown]
  - Incorrect dose administered by device [Unknown]
  - Device leakage [Unknown]
  - Accidental exposure to product [Unknown]
  - Needle issue [Unknown]
